FAERS Safety Report 8440495-X (Version None)
Quarter: 2012Q2

REPORT INFORMATION
  Report Type: 
  Country: None (occurrence: None)
  Receive Date: 20120615
  Receipt Date: 20120608
  Transmission Date: 20120825
  Serious: Yes (Hospitalization)
  Sender: FDA-Public Use
  Company Number: IT-GLAXOSMITHKLINE-B0807895A

PATIENT
  Sex: Female

DRUGS (8)
  1. DILTIAZEM HCL [Concomitant]
     Dosage: 60MG PER DAY
     Route: 048
  2. LASIX [Concomitant]
     Dosage: 25MG PER DAY
     Route: 048
  3. ALLOPURINOL [Concomitant]
     Dosage: 300MG PER DAY
     Route: 048
  4. SIMVASTATIN [Concomitant]
     Dosage: 20MG PER DAY
     Route: 048
  5. UNIPRIL [Concomitant]
     Dosage: 2.5MG PER DAY
     Route: 048
  6. FLUTICASONE PROPIONATE/SALMETEROL [Suspect]
     Indication: ASTHMA
     Dosage: 550MCG PER DAY
     Route: 055
     Dates: start: 20120217, end: 20120312
  7. SPIRIVA [Suspect]
     Indication: CHRONIC OBSTRUCTIVE PULMONARY DISEASE
     Dosage: 18MCG PER DAY
     Route: 055
     Dates: start: 20120217, end: 20120312
  8. PLAVIX [Concomitant]
     Dosage: 75MG PER DAY

REACTIONS (9)
  - TONGUE DISORDER [None]
  - PRURITUS [None]
  - DRY MOUTH [None]
  - DECREASED APPETITE [None]
  - PYREXIA [None]
  - ERYTHEMA [None]
  - DYSPHAGIA [None]
  - GAIT DISTURBANCE [None]
  - FALL [None]
